FAERS Safety Report 5107025-1 (Version None)
Quarter: 2006Q3

REPORT INFORMATION
  Report Type: 
  Country: None (occurrence: None)
  Receive Date: 20060913
  Receipt Date: 20060828
  Transmission Date: 20061208
  Serious: Yes (Hospitalization)
  Sender: FDA-Public Use
  Company Number: DSA_28644_2006

PATIENT
  Age: 29 Year
  Sex: Female

DRUGS (5)
  1. TAVOR [Suspect]
     Dosage: 5 MG ONCE PO
     Route: 048
     Dates: start: 20060821, end: 20060821
  2. DOMINAL [Suspect]
     Dosage: 800 MG ONCE PO
     Route: 048
     Dates: start: 20060821, end: 20060821
  3. NEUROCIL [Suspect]
     Dosage: 1 TAB ONCE PO
     Route: 048
     Dates: start: 20060821, end: 20060821
  4. MDA (ECSTASY) [Suspect]
     Dosage: 0.5 TAB ONCE PO
     Route: 048
     Dates: start: 20060821, end: 20060821
  5. ALCOHOL [Suspect]
     Dosage: PO
     Route: 048
     Dates: start: 20060821, end: 20060821

REACTIONS (4)
  - HALLUCINATION [None]
  - MULTIPLE DRUG OVERDOSE INTENTIONAL [None]
  - OROPHARYNGEAL SPASM [None]
  - TONGUE SPASM [None]
